FAERS Safety Report 5797282-0 (Version None)
Quarter: 2008Q2

REPORT INFORMATION
  Report Type: 
  Country: None (occurrence: None)
  Receive Date: 20080627
  Receipt Date: 20080612
  Transmission Date: 20081010
  Serious: Yes (Death, Hospitalization)
  Sender: FDA-Public Use
  Company Number: 2008AL006835

PATIENT
  Sex: Male
  Weight: 58.9676 kg

DRUGS (14)
  1. DIGOXIN TABLETS                (AMIDE) [Suspect]
     Indication: ATRIAL FIBRILLATION
     Dosage: 0.25 MG, DAILY, PO
     Route: 048
     Dates: start: 19960101, end: 20080101
  2. COUMADIN [Concomitant]
  3. ASPIRIN [Concomitant]
  4. COREG [Concomitant]
  5. SPIRONOLACTONE [Concomitant]
  6. BACLOFEN [Concomitant]
  7. OMEPRAZOLE [Concomitant]
  8. LEVOTHYROXINE SODIUM [Concomitant]
  9. TRAZODONE HCL [Concomitant]
  10. LEVEMIRE [Concomitant]
  11. CARDIZEM [Concomitant]
  12. DEMADEX [Concomitant]
  13. ALLOPURINOL [Concomitant]
  14. POTASSIUM CHLORIDE [Concomitant]

REACTIONS (1)
  - CARDIAC ARREST [None]
